FAERS Safety Report 6625378-X (Version None)
Quarter: 2010Q1

REPORT INFORMATION
  Report Type: 
  Country: None (occurrence: None)
  Receive Date: 20100310
  Receipt Date: 20090824
  Transmission Date: 20100710
  Serious: No
  Sender: FDA-Public Use
  Company Number: US-BIOGENIDEC-2009BI026764

PATIENT
  Age: 38 Year
  Sex: Female

DRUGS (4)
  1. AVONEX [Suspect]
     Indication: MULTIPLE SCLEROSIS
     Route: 030
     Dates: start: 20020101, end: 20030901
  2. AVONEX [Suspect]
     Route: 030
     Dates: start: 20040601, end: 20050101
  3. AVONEX [Suspect]
     Route: 030
     Dates: start: 20051201, end: 20090701
  4. AVONEX [Suspect]
     Route: 030
     Dates: start: 20090701

REACTIONS (2)
  - INFLUENZA LIKE ILLNESS [None]
  - LYMPHADENOPATHY [None]
